FAERS Safety Report 4294040-3 (Version None)
Quarter: 2004Q1

REPORT INFORMATION
  Report Type: 
  Country: None (occurrence: None)
  Receive Date: 20040211
  Receipt Date: 20040126
  Transmission Date: 20041129
  Serious: Yes (Hospitalization)
  Sender: FDA-Public Use
  Company Number: 235110

PATIENT
  Age: 56 Year
  Sex: Female

DRUGS (5)
  1. ACTIVELLE [Suspect]
     Indication: HORMONE REPLACEMENT THERAPY
     Dosage: 1 TAB, PER ORAL
     Route: 048
  2. SEREPAX (OXAZEPAM) [Concomitant]
  3. ZYREC (CETIRIZINE HYDROCHLORIDE) [Concomitant]
  4. VALLERGAN (ALIMEMAZINE TARTRATE) [Concomitant]
  5. CIPRAMIL (CITALOPRAM HYDROBROMIDE) [Concomitant]

REACTIONS (2)
  - ABDOMINAL PAIN [None]
  - LIVER FUNCTION TEST ABNORMAL [None]
